FAERS Safety Report 8693720 (Version 2)
Quarter: 2012Q4

REPORT INFORMATION
  Report Type: 
  Country: AT (occurrence: AT)
  Receive Date: 20120731
  Receipt Date: 20121102
  Transmission Date: 20130627
  Serious: Yes (Hospitalization, Other)
  Sender: FDA-Public Use
  Company Number: AT-BRISTOL-MYERS SQUIBB COMPANY-16807471

PATIENT
  Age: 26 Year
  Sex: Female

DRUGS (6)
  1. ABILIFY [Suspect]
     Indication: PSYCHOTIC DISORDER
     Route: 048
     Dates: start: 20110419, end: 20110513
  2. ABILIFY [Suspect]
     Indication: DEPRESSION
     Route: 048
     Dates: start: 20110419, end: 20110513
  3. TRITTICO [Suspect]
     Dosage: 150mg
  4. CIPRALEX [Suspect]
     Dosage: 10 mg
  5. TEMESTA [Suspect]
  6. TRUXAL [Suspect]
     Dosage: 2 tabs

REACTIONS (1)
  - Pulmonary embolism [Recovered/Resolved]
